FAERS Safety Report 7389219-8 (Version None)
Quarter: 2011Q2

REPORT INFORMATION
  Report Type: 
  Country: None (occurrence: None)
  Receive Date: 20110401
  Receipt Date: 20110318
  Transmission Date: 20111010
  Serious: Yes (Death)
  Sender: FDA-Public Use
  Company Number: DE-JNJFOC-20110312712

PATIENT
  Age: 28 Year
  Sex: Male

DRUGS (2)
  1. DIPHENHYDRAMINE HYDROCHLORIDE [Suspect]
     Route: 065
  2. DIPHENHYDRAMINE HYDROCHLORIDE [Suspect]
     Indication: PRODUCT USED FOR UNKNOWN INDICATION
     Route: 065

REACTIONS (6)
  - CARDIAC ARREST [None]
  - COMPLETED SUICIDE [None]
  - PULMONARY OEDEMA [None]
  - AGITATION [None]
  - VENTRICULAR TACHYCARDIA [None]
  - TOXICITY TO VARIOUS AGENTS [None]
